FAERS Safety Report 7382010-8 (Version None)
Quarter: 2011Q1

REPORT INFORMATION
  Report Type: 
  Country: None (occurrence: None)
  Receive Date: 20110329
  Receipt Date: 20110324
  Transmission Date: 20110831
  Serious: Yes (Hospitalization, Other)
  Sender: FDA-Public Use
  Company Number: US-PFIZER INC-2011014296

PATIENT
  Sex: Female

DRUGS (2)
  1. CHANTIX [Suspect]
     Indication: SMOKING CESSATION THERAPY
     Dosage: VARENICLINE STARTER PACK 0.5MG AND 1MG
     Dates: start: 20090201, end: 20090101
  2. EFFEXOR [Concomitant]
     Indication: ANXIETY
     Dosage: UNK
     Dates: start: 20030101

REACTIONS (6)
  - INTENTIONAL OVERDOSE [None]
  - DEPRESSION [None]
  - NIGHTMARE [None]
  - MENTAL DISORDER [None]
  - SUICIDE ATTEMPT [None]
  - ANXIETY [None]
